FAERS Safety Report 9882145 (Version 2)
Quarter: 2014Q1

REPORT INFORMATION
  Report Type: Spontaneous
  Country: BR (occurrence: BR)
  Receive Date: 20140207
  Receipt Date: 20140218
  Transmission Date: 20141002
  Serious: Yes (Hospitalization)
  Sender: FDA-Public Use
  Company Number: BR-ASTRAZENECA-2014SE08005

PATIENT
  Age: 61 Year
  Sex: Female

DRUGS (8)
  1. SELOZOK [Suspect]
     Indication: CARDIAC DISORDER
     Route: 048
     Dates: start: 201308, end: 201311
  2. SELOZOK [Suspect]
     Indication: CARDIAC DISORDER
     Route: 048
     Dates: start: 201311
  3. ROSUVASTATIN [Suspect]
     Indication: BLOOD CHOLESTEROL INCREASED
     Route: 048
     Dates: start: 201308, end: 201311
  4. ROSUVASTATIN [Suspect]
     Indication: BLOOD CHOLESTEROL INCREASED
     Route: 048
     Dates: start: 201311
  5. BRILINTA [Suspect]
     Indication: THROMBOSIS PROPHYLAXIS
     Route: 048
     Dates: start: 201308
  6. SOMALGIN [Concomitant]
     Indication: CARDIAC DISORDER
     Route: 048
     Dates: start: 201308
  7. MONOCORDIL [Concomitant]
     Indication: CARDIAC DISORDER
     Route: 048
     Dates: start: 2013
  8. DIOVAN [Concomitant]
     Indication: CARDIAC DISORDER
     Dosage: 160/5 MG, DAILY
     Route: 048
     Dates: start: 2013

REACTIONS (2)
  - Device occlusion [Recovered/Resolved]
  - Hypotension [Not Recovered/Not Resolved]
